FAERS Safety Report 14659817 (Version 7)
Quarter: 2020Q1

REPORT INFORMATION
  Report Type: Report from Study
  Country: DE (occurrence: DE)
  Receive Date: 20180320
  Receipt Date: 20200116
  Transmission Date: 20200409
  Serious: Yes (Hospitalization)
  Sender: FDA-Public Use
  Company Number: DE-PFIZER INC-2018108989

PATIENT
  Age: 65 Year
  Sex: Female

DRUGS (7)
  1. LODOTRA [Concomitant]
     Active Substance: PREDNISONE
     Indication: RHEUMATOID ARTHRITIS
     Dosage: 2 MG, 1X/DAY (IN THE EVENING)
     Route: 048
  2. PREDNISOLON [PREDNISOLONE] [Concomitant]
     Active Substance: PREDNISOLONE
     Indication: RHEUMATOID ARTHRITIS
     Dosage: 3 MG, 1X/DAY
     Route: 048
  3. METHOTREXATE SODIUM. [Suspect]
     Active Substance: METHOTREXATE SODIUM
     Indication: RHEUMATOID ARTHRITIS
     Dosage: 10 MG, WEEKLY (INJECTED ONCE PER WEEK)
     Dates: end: 201910
  4. NOVAMINSULFON [Concomitant]
     Active Substance: METAMIZOLE
     Dosage: 1-0-1, EXCEPT ON INJECTION DAYS WITH WITH TOCILIZUMAB
  5. NOVAMINSULFON [Concomitant]
     Active Substance: METAMIZOLE
     Dosage: 1000 MG, 1X/DAY
  6. ROACTEMRA [Suspect]
     Active Substance: TOCILIZUMAB
     Dosage: 162 MG, WEEKLY
     Route: 058
     Dates: start: 20190131
  7. ROACTEMRA [Suspect]
     Active Substance: TOCILIZUMAB
     Indication: RHEUMATOID ARTHRITIS
     Dosage: 162 MG, WEEKLY
     Route: 058
     Dates: start: 20150821, end: 20190124

REACTIONS (7)
  - Mucosal disorder [Recovered/Resolved]
  - Aphthous ulcer [Recovered/Resolved]
  - Chapped lips [Recovered/Resolved]
  - Lip disorder [Recovered/Resolved]
  - Therapeutic product effect decreased [Unknown]
  - Impaired healing [Recovered/Resolved]
  - Condition aggravated [Not Recovered/Not Resolved]

NARRATIVE: CASE EVENT DATE: 20150821
